FAERS Safety Report 5378664-8 (Version None)
Quarter: 2007Q3

REPORT INFORMATION
  Report Type: 
  Country: None (occurrence: None)
  Receive Date: 20070702
  Receipt Date: 20070702
  Transmission Date: 20080115
  Serious: Yes (Hospitalization)
  Sender: FDA-Public Use
  Company Number: None

PATIENT
  Sex: Male
  Weight: 93.2 kg

DRUGS (11)
  1. PIPERACILLIN AND TAZOBACTAM [Suspect]
     Indication: DIABETIC FOOT INFECTION
     Dosage: 2.25 G EVERY 6 HOURS IV DRIP
     Route: 041
     Dates: start: 20070622, end: 20070626
  2. VALSARTAN [Concomitant]
  3. LORATADINE [Concomitant]
  4. AMLODIPINE [Concomitant]
  5. FLUOXETINE [Concomitant]
  6. PRAMIPEXOLE DIHYDROCHLORIDE [Concomitant]
  7. METOPROLOL SUCCINATE [Concomitant]
  8. HEPARIN [Concomitant]
  9. FERROUS SULFATE [Concomitant]
  10. CLOPIDOGREL [Concomitant]
  11. INSULIN ASPART [Concomitant]

REACTIONS (1)
  - RENAL IMPAIRMENT [None]
